FAERS Safety Report 5289138-7 (Version None)
Quarter: 2007Q1

REPORT INFORMATION
  Report Type: 
  Country: None (occurrence: None)
  Receive Date: 20070124
  Receipt Date: 20060616
  Transmission Date: 20070707
  Serious: Yes (Other)
  Sender: FDA-Public Use
  Company Number: US200606004105

PATIENT
  Sex: Female

DRUGS (3)
  1. FORTEO [Suspect]
     Indication: OSTEOPOROSIS
     Dates: start: 20050601
  2. FORTEO [Concomitant]
  3. CALCIUM CARBONATE (CALCIUM CARBONATE) [Concomitant]

REACTIONS (1)
  - BLOOD CALCIUM INCREASED [None]
